FAERS Safety Report 13835065 (Version 1)
Quarter: 2017Q3

REPORT INFORMATION
  Report Type: Spontaneous
  Country: JP (occurrence: JP)
  Receive Date: 20170804
  Receipt Date: 20170804
  Transmission Date: 20171127
  Serious: Yes (Death)
  Sender: FDA-Public Use
  Company Number: JP-PFIZER INC-2017334323

PATIENT
  Age: 75 Year
  Sex: Female

DRUGS (5)
  1. AZILVA [Suspect]
     Active Substance: AZILSARTAN KAMEDOXOMIL
     Dosage: 10 MG, 1X/DAY
     Route: 048
     Dates: start: 20151002
  2. FUROSEMIDE. [Suspect]
     Active Substance: FUROSEMIDE
     Dosage: 40 MG, 1X/DAY
     Route: 048
     Dates: start: 20151002
  3. ABILIFY [Suspect]
     Active Substance: ARIPIPRAZOLE
     Indication: SCHIZOPHRENIA
     Dosage: UNK UNK, MONTHLY
     Route: 030
     Dates: start: 20150703, end: 20170705
  4. SPIRONOLACTONE. [Suspect]
     Active Substance: SPIRONOLACTONE
     Dosage: 25 MG, 1X/DAY
     Route: 048
     Dates: start: 20151002
  5. VITAMINS NOS [Suspect]
     Active Substance: VITAMINS
     Dosage: 15 MG, 1X/DAY
     Route: 048
     Dates: start: 20151002

REACTIONS (2)
  - Cardiac failure congestive [Fatal]
  - Pulmonary infarction [Fatal]

NARRATIVE: CASE EVENT DATE: 20170706
